FAERS Safety Report 6169014-8 (Version None)
Quarter: 2009Q2

REPORT INFORMATION
  Report Type: 
  Country: None (occurrence: None)
  Receive Date: 20090427
  Receipt Date: 20090420
  Transmission Date: 20091009
  Serious: Yes (Life-Threatening, Hospitalization, Other)
  Sender: FDA-Public Use
  Company Number: US-PFIZER INC-2009167567

PATIENT
  Sex: Female
  Weight: 117.46 kg

DRUGS (14)
  1. CELEBREX [Suspect]
     Indication: RHEUMATOID ARTHRITIS
     Dosage: 200 MG, 1X/DAY
     Dates: start: 20040301, end: 20080101
  2. ALL OTHER THERAPEUTIC PRODUCTS [Concomitant]
  3. DARVOCET-N 100 [Concomitant]
     Indication: PAIN
  4. PREVACID [Concomitant]
  5. SYNTHROID [Concomitant]
  6. LASIX [Concomitant]
  7. MONTELUKAST [Concomitant]
  8. ULTRACET [Concomitant]
  9. KLONOPIN [Concomitant]
  10. NASONEX [Concomitant]
  11. FLEXERIL [Concomitant]
  12. HYDROXYZINE [Concomitant]
  13. ATENOLOL [Concomitant]
  14. DOXYCYCLINE [Concomitant]

REACTIONS (7)
  - CARDIAC FAILURE [None]
  - CARDIOMEGALY [None]
  - DIABETES MELLITUS [None]
  - DYSPNOEA [None]
  - FRACTURE [None]
  - HYPERTENSION [None]
  - OEDEMA PERIPHERAL [None]
